FAERS Safety Report 8840400 (Version 2)
Quarter: 2015Q3

REPORT INFORMATION
  Report Type: Report from Study
  Country: US (occurrence: US)
  Receive Date: 20121015
  Receipt Date: 20150818
  Transmission Date: 20151125
  Serious: Yes (Hospitalization)
  Sender: FDA-Public Use
  Company Number: US-ROCHE-1132825

PATIENT
  Sex: Male
  Weight: 74.7 kg

DRUGS (3)
  1. PREDNISONE. [Concomitant]
     Active Substance: PREDNISONE
     Route: 065
  2. NUTROPIN [Suspect]
     Active Substance: SOMATROPIN
     Indication: GLOMERULONEPHRITIS CHRONIC
  3. NUTROPIN [Suspect]
     Active Substance: SOMATROPIN
     Indication: RHEUMATOID ARTHRITIS
     Route: 058
     Dates: start: 19981210

REACTIONS (3)
  - Viral infection [Unknown]
  - Adrenal insufficiency [Unknown]
  - Vomiting [Unknown]
